FAERS Safety Report 5035810-3 (Version None)
Quarter: 2006Q2

REPORT INFORMATION
  Report Type: 
  Country: None (occurrence: None)
  Receive Date: 20060526
  Receipt Date: 20060317
  Transmission Date: 20061013
  Serious: No
  Sender: FDA-Public Use
  Company Number: FABR-11308

PATIENT
  Age: 53 Year
  Sex: Male
  Weight: 56.5 kg

DRUGS (22)
  1. FABRAZYME [Suspect]
     Indication: FABRY'S DISEASE
     Dosage: SEE IMAGE
     Route: 042
     Dates: start: 20031015, end: 20040928
  2. FABRAZYME [Suspect]
     Indication: FABRY'S DISEASE
     Dosage: SEE IMAGE
     Route: 042
     Dates: start: 20050501, end: 20050627
  3. FABRAZYME [Suspect]
     Indication: FABRY'S DISEASE
     Dosage: SEE IMAGE
     Route: 042
     Dates: start: 20050711, end: 20050901
  4. FABRAZYME [Suspect]
     Indication: FABRY'S DISEASE
     Dosage: SEE IMAGE
     Route: 042
     Dates: start: 20050926, end: 20050926
  5. FABRAZYME [Suspect]
     Indication: FABRY'S DISEASE
     Dosage: SEE IMAGE
     Route: 042
     Dates: start: 20041206
  6. FABRAZYME [Suspect]
     Indication: FABRY'S DISEASE
     Dosage: SEE IMAGE
     Route: 042
     Dates: start: 20051219
  7. COVERSYL [Concomitant]
  8. PREVISCAN [Concomitant]
  9. TARDYFERON [Concomitant]
  10. ASPIRIN [Concomitant]
  11. TRINIPATCH [Concomitant]
  12. ADANCOR [Concomitant]
  13. PRAVASTATIN [Concomitant]
  14. MOPRAL [Concomitant]
  15. SOLUPRED [Concomitant]
  16. DEROXAT [Concomitant]
  17. VITAMIN B1/B6 [Concomitant]
  18. VITAMIN B-12 [Concomitant]
  19. NEORECORMON [Concomitant]
  20. ACETAMINOPHEN [Concomitant]
  21. ATARAX [Concomitant]
  22. HYDROCORTISONE HEMISUCCINATE [Concomitant]

REACTIONS (6)
  - CHILLS [None]
  - CONFUSIONAL STATE [None]
  - ECZEMA [None]
  - MUSCULOSKELETAL PAIN [None]
  - PYREXIA [None]
  - SKIN DISCOLOURATION [None]
